FAERS Safety Report 7920992-3 (Version None)
Quarter: 2011Q4

REPORT INFORMATION
  Report Type: 
  Country: None (occurrence: None)
  Receive Date: 20111117
  Receipt Date: 20111107
  Transmission Date: 20120403
  Serious: Yes (Other)
  Sender: FDA-Public Use
  Company Number: CN-MILLENNIUM PHARMACEUTICALS, INC.-2011-05593

PATIENT

DRUGS (2)
  1. VELCADE [Suspect]
     Dosage: 0.7 MG/M2, UNK
     Route: 042
  2. VELCADE [Suspect]
     Indication: DIFFUSE LARGE B-CELL LYMPHOMA
     Dosage: 2.0 MG/M2, UNK
     Route: 042

REACTIONS (1)
  - FUNGAL INFECTION [None]
